FAERS Safety Report 4768648-2 (Version None)
Quarter: 2005Q3

REPORT INFORMATION
  Report Type: 
  Country: None (occurrence: None)
  Receive Date: 20050914
  Receipt Date: 20050902
  Transmission Date: 20060218
  Serious: Yes (Death, Hospitalization)
  Sender: FDA-Public Use
  Company Number: IE-AMGEN-UK149152

PATIENT
  Sex: Female

DRUGS (6)
  1. NEULASTA [Suspect]
     Indication: CHEMOTHERAPY
     Route: 065
     Dates: start: 20050807
  2. NEUPOGEN [Suspect]
     Indication: CHEMOTHERAPY
     Route: 065
     Dates: start: 20050901
  3. IFOSFAMIDE [Concomitant]
     Route: 065
     Dates: start: 20050806
  4. CARBOPLATIN [Concomitant]
     Route: 065
     Dates: start: 20050806
  5. ETOPOSIDE [Concomitant]
     Route: 065
     Dates: start: 20050806
  6. RITUXIMAB [Concomitant]
     Route: 065
     Dates: start: 20050806

REACTIONS (1)
  - NEUTROPENIC SEPSIS [None]
